FAERS Safety Report 6962664-8 (Version None)
Quarter: 2010Q3

REPORT INFORMATION
  Report Type: 
  Country: None (occurrence: None)
  Receive Date: 20100902
  Receipt Date: 20100823
  Transmission Date: 20110219
  Serious: Yes (Hospitalization)
  Sender: FDA-Public Use
  Company Number: US-PFIZER INC-2010087444

PATIENT
  Sex: Male
  Weight: 63 kg

DRUGS (12)
  1. ANTIVERT [Suspect]
     Indication: DIZZINESS
     Dosage: 25 MG, 4X/DAY
     Route: 048
     Dates: start: 20080101, end: 20100701
  2. ANTIVERT [Suspect]
     Indication: BALANCE DISORDER
  3. TAMSULOSIN HYDROCHLORIDE [Concomitant]
     Indication: POLLAKIURIA
     Dosage: 0.4 MG, 2X/DAY
     Route: 048
  4. LOPRESSOR [Concomitant]
     Indication: ANTICOAGULANT THERAPY
     Dosage: 50 MG, 1X/DAY
     Route: 048
  5. LIPITOR [Concomitant]
     Indication: ANTICOAGULANT THERAPY
     Dosage: 20 MG, 1X/DAY
     Route: 048
  6. ZANTAC [Concomitant]
     Indication: GASTROOESOPHAGEAL REFLUX DISEASE
     Dosage: 150 MG, 2X/DAY
     Route: 048
  7. QVAR 40 [Concomitant]
     Indication: EMPHYSEMA
     Dosage: 80 UG, 2X/DAY
  8. COMBIVENT [Concomitant]
     Indication: EMPHYSEMA
     Dosage: 14.7 G, 2X/DAY
  9. IPRATROPIUM BROMIDE [Concomitant]
     Indication: EMPHYSEMA
     Dosage: 12.9 G, AS NEEDED
  10. PHENOBARBITAL [Concomitant]
     Indication: CONVULSION
     Dosage: 30 MG, 3X/DAY
     Route: 048
  11. DILANTIN [Concomitant]
     Indication: CONVULSION
     Dosage: 100 MG, 4X/DAY
     Route: 048
  12. LIBRIUM [Concomitant]
     Indication: ALCOHOLISM
     Dosage: 10 MG, 1X/DAY
     Route: 048

REACTIONS (1)
  - CORONARY ARTERY BYPASS [None]
